FAERS Safety Report 20568467 (Version 2)
Quarter: 2022Q1

REPORT INFORMATION
  Report Type: Report from Study
  Country: MY (occurrence: MY)
  Receive Date: 20220308
  Receipt Date: 20220309
  Transmission Date: 20220423
  Serious: Yes (Hospitalization)
  Sender: FDA-Public Use
  Company Number: MY-009507513-2202MYS006471

PATIENT
  Age: 56 Year
  Sex: Male
  Weight: 64.9 kg

DRUGS (6)
  1. BELZUTIFAN [Suspect]
     Active Substance: BELZUTIFAN
     Indication: Clear cell renal cell carcinoma
     Dosage: 120 MILLIGRAM, QD
     Route: 048
     Dates: start: 20220209, end: 20220209
  2. PEMBROLIZUMAB [Suspect]
     Active Substance: PEMBROLIZUMAB
     Indication: Clear cell renal cell carcinoma
     Dosage: 400 MILLIGRAM, EVERY 6 WEEKS
     Route: 042
     Dates: start: 20220209, end: 20220209
  3. LENVATINIB MESYLATE [Suspect]
     Active Substance: LENVATINIB MESYLATE
     Indication: Clear cell renal cell carcinoma
     Dosage: 20 MILLIGRAM, QD
     Route: 048
     Dates: start: 20220209, end: 20220209
  4. AMLODIPINE [Concomitant]
     Active Substance: AMLODIPINE BESYLATE
     Indication: Hypertension
     Dosage: 10 MILLIGRAM, QD
     Route: 048
     Dates: start: 201001
  5. CARDIPRIN [ACETYLSALICYLIC ACID;GLYCINE] [Concomitant]
     Indication: Thrombocytosis
     Dosage: 100 MILLIGRAM, QD
     Route: 048
     Dates: start: 201201
  6. AMOXICILLIN\CLAVULANATE POTASSIUM [Concomitant]
     Active Substance: AMOXICILLIN\CLAVULANATE POTASSIUM
     Indication: Product used for unknown indication
     Dosage: 625 MILLIGRAM, TID
     Route: 048
     Dates: start: 20220213, end: 20220217

REACTIONS (4)
  - Pneumonia [Recovered/Resolved with Sequelae]
  - Pneumonia [Recovering/Resolving]
  - Pericardial effusion [Not Recovered/Not Resolved]
  - Hypoxia [Recovered/Resolved]

NARRATIVE: CASE EVENT DATE: 20220218
